FAERS Safety Report 9354595 (Version 1)
Quarter: 2013Q2

REPORT INFORMATION
  Report Type: Spontaneous
  Country: US (occurrence: US)
  Receive Date: 20130618
  Receipt Date: 20130618
  Transmission Date: 20140414
  Serious: No
  Sender: FDA-Public Use
  Company Number: US-009507513-1306USA002822

PATIENT
  Age: 59 Year
  Sex: Female

DRUGS (4)
  1. NASONEX [Suspect]
     Indication: HYPERSENSITIVITY
     Dosage: 1 DF, BID
     Route: 045
  2. ASTEPRO [Concomitant]
  3. SINGULAIR [Concomitant]
     Route: 048
  4. ZYRTEC [Concomitant]

REACTIONS (4)
  - Nasal congestion [Not Recovered/Not Resolved]
  - Nasal discomfort [Not Recovered/Not Resolved]
  - Drug dose omission [Unknown]
  - Product quality issue [Unknown]
